FAERS Safety Report 5188824-7 (Version None)
Quarter: 2006Q4

REPORT INFORMATION
  Report Type: 
  Country: None (occurrence: None)
  Receive Date: 20061214
  Receipt Date: 20061129
  Transmission Date: 20070319
  Serious: Yes (Life-Threatening)
  Sender: FDA-Public Use
  Company Number: A-US2006-13514

PATIENT
  Age: 75 Year
  Sex: Male

DRUGS (11)
  1. TRACLEER [Suspect]
     Indication: PULMONARY HYPERTENSION
     Dosage: 31.25 MG, BID, ORAL
     Route: 048
     Dates: start: 20061002, end: 20061003
  2. COUMADIN [Concomitant]
  3. POTASSIUM                 (POTASSIUM) [Concomitant]
  4. DILTIAZEM HCL [Concomitant]
  5. LASIX [Concomitant]
  6. SYNTHROID [Concomitant]
  7. DIGOXIN [Concomitant]
  8. DIOVAN [Concomitant]
  9. TIOTROPIUM                       (TIOTROPIUM) [Concomitant]
  10. FLUTICASONE W/SALMETEROL [Concomitant]
  11. OXYGEN [Concomitant]

REACTIONS (12)
  - ANAPHYLACTIC REACTION [None]
  - BLOOD UREA INCREASED [None]
  - DRUG HYPERSENSITIVITY [None]
  - EPISTAXIS [None]
  - HAEMATOCRIT DECREASED [None]
  - HAEMOGLOBIN DECREASED [None]
  - HEART RATE DECREASED [None]
  - HYPERHIDROSIS [None]
  - INTERNATIONAL NORMALISED RATIO DECREASED [None]
  - JUGULAR VEIN DISTENSION [None]
  - OEDEMA PERIPHERAL [None]
  - TRICUSPID VALVE INCOMPETENCE [None]
